FAERS Safety Report 8974522 (Version 1)
Quarter: 2012Q4

REPORT INFORMATION
  Report Type: 
  Country: US (occurrence: US)
  Receive Date: 20121220
  Receipt Date: 20121220
  Transmission Date: 20130627
  Serious: Yes (Other)
  Sender: FDA-Public Use
  Company Number: US-PFIZER INC-2012323605

PATIENT
  Age: 52 Year
  Sex: Female
  Weight: 72.56 kg

DRUGS (2)
  1. CHANTIX [Suspect]
     Indication: SMOKING CESSATION THERAPY
     Dosage: 0.5 mg, 1x/day
     Route: 048
     Dates: start: 20120925, end: 2012
  2. CHANTIX [Suspect]
     Dosage: UNK
     Route: 048
     Dates: start: 2012, end: 20121025

REACTIONS (3)
  - Pneumonia [Recovered/Resolved]
  - Neoplasm [Unknown]
  - Malaise [Unknown]
